FAERS Safety Report 7910814-9 (Version None)
Quarter: 2011Q4

REPORT INFORMATION
  Report Type: 
  Country: None (occurrence: None)
  Receive Date: 20111114
  Receipt Date: 20111109
  Transmission Date: 20120403
  Serious: Yes (Hospitalization, Other)
  Sender: FDA-Public Use
  Company Number: SE-AMGEN-SWESP2011046356

PATIENT
  Age: 30 Year
  Sex: Female
  Weight: 105 kg

DRUGS (2)
  1. ETANERCEPT [Suspect]
     Indication: PSORIASIS
     Dosage: 50 MG, QWK
     Route: 058
     Dates: start: 20110427, end: 20110905
  2. METHOTREXATE [Concomitant]
     Indication: PSORIASIS
     Dosage: 7.5 MG, QWK
     Route: 058

REACTIONS (2)
  - DYSPNOEA [None]
  - URTICARIA [None]
